FAERS Safety Report 8304688-4 (Version None)
Quarter: 2012Q2

REPORT INFORMATION
  Report Type: 
  Country: None (occurrence: None)
  Receive Date: 20120423
  Receipt Date: 20120416
  Transmission Date: 20120825
  Serious: Yes (Other)
  Sender: FDA-Public Use
  Company Number: US-ROCHE-1056106

PATIENT
  Sex: Female

DRUGS (2)
  1. BONIVA [Suspect]
     Indication: PRODUCT USED FOR UNKNOWN INDICATION
     Route: 048
  2. PERCOCET [Concomitant]
     Indication: PAIN

REACTIONS (4)
  - PAIN [None]
  - KNEE ARTHROPLASTY [None]
  - FALL [None]
  - DYSPHAGIA [None]
